FAERS Safety Report 9626781 (Version 1)
Quarter: 2013Q4

REPORT INFORMATION
  Report Type: Spontaneous
  Country: IT (occurrence: IT)
  Receive Date: 20131016
  Receipt Date: 20131016
  Transmission Date: 20140711
  Serious: Yes (Other)
  Sender: FDA-Public Use
  Company Number: IT-GLAXOSMITHKLINE-B0929786A

PATIENT
  Age: 80 Year
  Sex: Male

DRUGS (3)
  1. AVODART [Suspect]
     Indication: BENIGN PROSTATIC HYPERPLASIA
     Dosage: .5MG PER DAY
     Route: 048
     Dates: start: 20130926, end: 20130926
  2. ALLOPURINOL [Concomitant]
     Route: 065
  3. SOTALEX [Concomitant]
     Route: 065

REACTIONS (2)
  - Urticaria [Recovering/Resolving]
  - Toxic skin eruption [Recovering/Resolving]
